FAERS Safety Report 5824258-7 (Version None)
Quarter: 2008Q3

REPORT INFORMATION
  Report Type: 
  Country: None (occurrence: None)
  Receive Date: 20080728
  Receipt Date: 20080724
  Transmission Date: 20090109
  Serious: Yes (Other)
  Sender: FDA-Public Use
  Company Number: US-BAYER-200810760BCC

PATIENT
  Sex: Female

DRUGS (4)
  1. ASPIRIN [Suspect]
     Indication: ISCHAEMIC HEART DISEASE PROPHYLAXIS
     Dosage: TOTAL DAILY DOSE: 81 MG  UNIT DOSE: 81 MG
     Route: 048
     Dates: start: 20070501, end: 20080219
  2. MIDOL [Suspect]
     Indication: HEADACHE
     Route: 048
     Dates: start: 20080101
  3. NYQUIL DAY AND NIGHT FORMULA [Concomitant]
  4. PENICILLIN [Concomitant]

REACTIONS (1)
  - DIABETES MELLITUS [None]
